FAERS Safety Report 7602743-5 (Version None)
Quarter: 2011Q3

REPORT INFORMATION
  Report Type: 
  Country: None (occurrence: None)
  Receive Date: 20110712
  Receipt Date: 20110706
  Transmission Date: 20111222
  Serious: Yes (Death)
  Sender: FDA-Public Use
  Company Number: JP-ASTELLAS-2011JP004031

PATIENT
  Age: 35 Year
  Sex: Female
  Weight: 62.1 kg

DRUGS (8)
  1. TACROLIMUS [Suspect]
     Indication: LUPUS NEPHRITIS
     Dosage: 0.5 MG, UNKNOWN/D
     Route: 048
     Dates: start: 20081110, end: 20090223
  2. BAYCARON [Concomitant]
     Dosage: UNK
     Route: 048
     Dates: end: 20090223
  3. LASIX [Concomitant]
     Dosage: UNK
     Route: 048
     Dates: end: 20090223
  4. PURSENNID [Concomitant]
     Indication: CONSTIPATION
     Dosage: UNK
     Route: 048
     Dates: end: 20090119
  5. TACROLIMUS [Suspect]
     Dosage: 0.5 MG, UNKNOWN/D
     Route: 048
     Dates: start: 20080630, end: 20080707
  6. TACROLIMUS [Suspect]
     Dosage: 1 MG, UNKNOWN/D
     Route: 048
     Dates: start: 20080707, end: 20081110
  7. PREDNISOLONE [Concomitant]
     Indication: LUPUS NEPHRITIS
     Dosage: 15 MG, UNKNOWN/D
     Route: 048
     Dates: end: 20090223
  8. TACROLIMUS [Suspect]
     Dosage: 2 MG, UNKNOWN/D
     Route: 048
     Dates: start: 20080623, end: 20080630

REACTIONS (2)
  - UROSEPSIS [None]
  - DISSEMINATED INTRAVASCULAR COAGULATION [None]
